FAERS Safety Report 18594004 (Version 3)
Quarter: 2021Q3

REPORT INFORMATION
  Report Type: Spontaneous
  Country: US (occurrence: US)
  Receive Date: 20201209
  Receipt Date: 20210727
  Transmission Date: 20211014
  Serious: No
  Sender: FDA-Public Use
  Company Number: US-TEVA-2020-US-1855533

PATIENT
  Sex: Female

DRUGS (23)
  1. GEMFIBROZIL. [Concomitant]
     Active Substance: GEMFIBROZIL
  2. LYRICA [Concomitant]
     Active Substance: PREGABALIN
  3. KLONOPIN [Concomitant]
     Active Substance: CLONAZEPAM
  4. NEXIUM [Concomitant]
     Active Substance: ESOMEPRAZOLE MAGNESIUM
  5. LAMOTRIGINE. [Concomitant]
     Active Substance: LAMOTRIGINE
     Route: 065
  6. SULFASALAZINE. [Concomitant]
     Active Substance: SULFASALAZINE
  7. ALLEGRA [Concomitant]
     Active Substance: FEXOFENADINE HYDROCHLORIDE
  8. TRILEPTAL [Concomitant]
     Active Substance: OXCARBAZEPINE
  9. DEXILANT 60 MG CAP DR BP [Concomitant]
     Route: 065
  10. AUSTEDO [Suspect]
     Active Substance: DEUTETRABENAZINE
     Dosage: 18 MILLIGRAM DAILY;
     Route: 048
  11. FERROUS SULFATE. [Concomitant]
     Active Substance: FERROUS SULFATE
  12. CALCIUM CITRATE + D [Concomitant]
     Active Substance: CALCIUM CITRATE\CHOLECALCIFEROL
  13. VITAMIN D [Concomitant]
     Active Substance: VITAMIN D NOS
  14. EFFEXOR XR [Concomitant]
     Active Substance: VENLAFAXINE HYDROCHLORIDE
  15. TIZANIDINE HCL 2 MG CAPSULE [Concomitant]
  16. BACLOFEN. [Concomitant]
     Active Substance: BACLOFEN
  17. PREDNISONE. [Concomitant]
     Active Substance: PREDNISONE
  18. PREGABALIN. [Concomitant]
     Active Substance: PREGABALIN
     Route: 065
  19. AUSTEDO [Suspect]
     Active Substance: DEUTETRABENAZINE
     Indication: HUNTINGTON^S DISEASE
     Dosage: 12 MILLIGRAM DAILY;
     Route: 048
  20. LIDODERM 5 % ADH. PATCH [Concomitant]
  21. MULTI?VITAMINS [Concomitant]
  22. ASPIRIN. [Concomitant]
     Active Substance: ASPIRIN
  23. ETODOLAC. [Concomitant]
     Active Substance: ETODOLAC

REACTIONS (4)
  - Depression [Unknown]
  - Head discomfort [Recovered/Resolved]
  - Feeling abnormal [Recovered/Resolved]
  - Dizziness [Recovered/Resolved]
